FAERS Safety Report 21795054 (Version 1)
Quarter: 2022Q4

REPORT INFORMATION
  Report Type: Spontaneous
  Country: UG (occurrence: UG)
  Receive Date: 20221229
  Receipt Date: 20221229
  Transmission Date: 20230112
  Serious: Yes (Other)
  Sender: FDA-Public Use
  Company Number: UG-MYLANLABS-2022M1146940

PATIENT
  Age: 44 Year
  Sex: Male

DRUGS (1)
  1. ATAZANAVIR SULFATE\RITONAVIR [Suspect]
     Active Substance: ATAZANAVIR SULFATE\RITONAVIR
     Indication: Product used for unknown indication
     Dosage: UNK
     Route: 065
     Dates: start: 2005

REACTIONS (11)
  - Cervical vertebral fracture [Unknown]
  - Intervertebral disc protrusion [Unknown]
  - Myelopathy [Unknown]
  - Spinal osteoarthritis [Unknown]
  - Osteoporosis [Unknown]
  - Intervertebral disc degeneration [Unknown]
  - Osteoarthritis [Unknown]
  - Spinal stenosis [Unknown]
  - Radiculopathy [Unknown]
  - Sinusitis [Unknown]
  - Dysstasia [Unknown]

NARRATIVE: CASE EVENT DATE: 20210101
